FAERS Safety Report 12488501 (Version 1)
Quarter: 2016Q2

REPORT INFORMATION
  Report Type: Spontaneous
  Country: US (occurrence: US)
  Receive Date: 20160622
  Receipt Date: 20160622
  Transmission Date: 20160815
  Serious: No
  Sender: FDA-Public Use
  Company Number: US-ELI_LILLY_AND_COMPANY-US201606005561

PATIENT
  Age: 50 Year
  Sex: Female

DRUGS (2)
  1. HUMULIN N [Suspect]
     Active Substance: INSULIN HUMAN
     Indication: TYPE 2 DIABETES MELLITUS
     Dosage: 35 U, UNKNOWN
     Route: 065
     Dates: start: 2014
  2. HUMULIN N [Suspect]
     Active Substance: INSULIN HUMAN
     Dosage: 35 U, UNKNOWN
     Route: 065

REACTIONS (2)
  - Wrong technique in product usage process [Unknown]
  - Influenza [Unknown]

NARRATIVE: CASE EVENT DATE: 20160610
